FAERS Safety Report 8911068 (Version 1)
Quarter: 2012Q4

REPORT INFORMATION
  Report Type: Spontaneous
  Country: US (occurrence: None)
  Receive Date: 20121114
  Receipt Date: 20121114
  Transmission Date: 20130627
  Serious: No
  Sender: FDA-Public Use
  Company Number: None

PATIENT
  Age: 50 Year
  Sex: Female
  Weight: 78.9 kg

DRUGS (11)
  1. CEFAZOLIN [Suspect]
     Indication: CHOLECYSTECTOMY
     Route: 042
     Dates: start: 20110505, end: 20110505
  2. PROPOFOL [Suspect]
     Indication: CHOLECYSTECTOMY
     Dates: start: 20110505, end: 20110505
  3. SEVOFLURANE [Suspect]
     Indication: CHOLECYSTECTOMY
     Dates: start: 20110505, end: 20110505
  4. AZITHROMYCIN [Concomitant]
  5. CIPROFLOXACIN [Concomitant]
  6. DIPHENHYDRAMINE [Concomitant]
  7. HYDROXYZINE [Concomitant]
  8. LANSOPRAZOLE [Concomitant]
  9. PROMETHAZINE [Concomitant]
  10. SULFAMETHOXAZOLE W/TRIMETHOPRIM [Concomitant]
  11. TRAMADOL [Concomitant]

REACTIONS (10)
  - Blood bilirubin increased [None]
  - Pruritus [None]
  - Blood urine present [None]
  - Urinary tract infection [None]
  - Blood alkaline phosphatase increased [None]
  - Aspartate aminotransferase increased [None]
  - Alanine aminotransferase increased [None]
  - Feeling abnormal [None]
  - Drug-induced liver injury [None]
  - Hepatocellular injury [None]
